FAERS Safety Report 21447588 (Version 1)
Quarter: 2022Q4

REPORT INFORMATION
  Report Type: Spontaneous
  Country: US (occurrence: US)
  Receive Date: 20221012
  Receipt Date: 20221012
  Transmission Date: 20230113
  Serious: Yes (Hospitalization)
  Sender: FDA-Public Use
  Company Number: US-PFIZER INC-202201214140

PATIENT
  Age: 75 Year
  Sex: Male
  Weight: 86.18 kg

DRUGS (2)
  1. PAXLOVID [Suspect]
     Active Substance: NIRMATRELVIR\RITONAVIR
     Indication: COVID-19 treatment
     Dosage: UNK
     Dates: start: 20220808, end: 20220811
  2. OXAZEPAM [Concomitant]
     Active Substance: OXAZEPAM
     Indication: Anxiety
     Dosage: 1 CAPSULE BY MOUTH 4 TIMES A DAY 15MG ON THAT OVER 20 YEARS
     Route: 048

REACTIONS (3)
  - Confusional state [Unknown]
  - Cardiac disorder [Unknown]
  - Mental disorder [Unknown]
